FAERS Safety Report 18506575 (Version 1)
Quarter: 2020Q4

REPORT INFORMATION
  Report Type: Spontaneous
  Country: US (occurrence: US)
  Receive Date: 20201113
  Receipt Date: 20201113
  Transmission Date: 20210114
  Serious: Yes (Death)
  Sender: FDA-Public Use
  Company Number: None

PATIENT
  Age: 61 Year
  Sex: Male

DRUGS (1)
  1. TEMOZOLOMIDE  100MG [Suspect]
     Active Substance: TEMOZOLOMIDE
     Indication: BRAIN NEOPLASM MALIGNANT
     Dosage: 4 CAPSULES DAILY X 5 DAYS BY MOUTH
     Route: 048
     Dates: start: 202009

REACTIONS (1)
  - Death [None]

NARRATIVE: CASE EVENT DATE: 20201031
